FAERS Safety Report 14115214 (Version 3)
Quarter: 2018Q1

REPORT INFORMATION
  Report Type: Spontaneous
  Country: US (occurrence: US)
  Receive Date: 20171023
  Receipt Date: 20180123
  Transmission Date: 20180508
  Serious: Yes (Other)
  Sender: FDA-Public Use
  Company Number: US-TEVA-818453USA

PATIENT
  Sex: Male
  Weight: 90.7 kg

DRUGS (4)
  1. MEDICAL MARIJUANA [Concomitant]
     Active Substance: CANNABIS SATIVA SUBSP. INDICA TOP
     Indication: MIGRAINE
     Dosage: DAILY
     Route: 065
  2. CEPHALEXIN. [Concomitant]
     Active Substance: CEPHALEXIN
     Dosage: 1000 MILLIGRAM DAILY;
     Route: 048
  3. RITALIN [Concomitant]
     Active Substance: METHYLPHENIDATE HYDROCHLORIDE
     Indication: ATTENTION DEFICIT/HYPERACTIVITY DISORDER
     Dosage: 60 MILLIGRAM DAILY;
     Route: 065
  4. MUPIROCIN. [Suspect]
     Active Substance: MUPIROCIN
     Indication: STAPHYLOCOCCAL SKIN INFECTION
     Route: 061
     Dates: end: 20171201

REACTIONS (10)
  - Drug effect decreased [Unknown]
  - Vision blurred [Unknown]
  - Chemical burns of eye [Recovered/Resolved]
  - Eye irritation [Unknown]
  - Eye pain [Unknown]
  - Eye swelling [Unknown]
  - Presyncope [Unknown]
  - Corneal abrasion [Unknown]
  - Pain [Unknown]
  - Accidental exposure to product [Unknown]
